FAERS Safety Report 9057002 (Version 1)
Quarter: 2013Q1

REPORT INFORMATION
  Report Type: Spontaneous
  Country: US (occurrence: US)
  Receive Date: 20130131
  Receipt Date: 20130131
  Transmission Date: 20140127
  Serious: No
  Sender: FDA-Public Use
  Company Number: US-ABBOTT-12P-163-0994205-00

PATIENT
  Age: 13 None
  Sex: Male
  Weight: 34.05 kg

DRUGS (8)
  1. HUMIRA [Suspect]
     Indication: CROHN^S DISEASE
     Dates: start: 2011
  2. BENADRYL ALLERGY [Suspect]
     Indication: ABDOMINAL PAIN UPPER
  3. PREDNISONE [Suspect]
     Indication: CROHN^S DISEASE
  4. ENTOCORT ENEMA [Concomitant]
     Indication: CROHN^S DISEASE
  5. NUTROPIN [Concomitant]
     Indication: BLOOD GROWTH HORMONE
  6. CLARITIN [Concomitant]
     Indication: HYPERSENSITIVITY
  7. FLONASE [Concomitant]
     Indication: HYPERSENSITIVITY
  8. UNKNOWN MEDICATION (NON-ABBOTT) [Concomitant]
     Indication: HYPERSENSITIVITY

REACTIONS (8)
  - Off label use [Not Recovered/Not Resolved]
  - Disorientation [Recovered/Resolved]
  - Malaise [Recovered/Resolved]
  - Adrenal disorder [Not Recovered/Not Resolved]
  - Hypersensitivity [Recovered/Resolved]
  - Pain [Recovered/Resolved]
  - Abdominal pain upper [Recovered/Resolved]
  - Injection site pain [Recovered/Resolved]
